FAERS Safety Report 9129127 (Version 1)
Quarter: 2013Q1

REPORT INFORMATION
  Report Type: Spontaneous
  Country: US (occurrence: US)
  Receive Date: 20130228
  Receipt Date: 20130228
  Transmission Date: 20140127
  Serious: No
  Sender: FDA-Public Use
  Company Number: US-ABBOTT-12P-163-1025843-00

PATIENT
  Sex: Male
  Weight: 115.77 kg

DRUGS (12)
  1. ANDROGEL [Suspect]
     Indication: BLOOD TESTOSTERONE DECREASED
     Dosage: 1 PUMP PER DAY
     Dates: start: 201208
  2. XARELTO [Concomitant]
     Indication: ANTICOAGULANT THERAPY
  3. FENOFIBRATE [Concomitant]
     Indication: PRODUCT USED FOR UNKNOWN INDICATION
  4. JANUVIA [Concomitant]
     Indication: DIABETES MELLITUS
  5. CARVEDILOL [Concomitant]
     Indication: CARDIAC DISORDER
  6. LOVASTATIN [Concomitant]
     Indication: BLOOD CHOLESTEROL INCREASED
  7. LASIX [Concomitant]
     Indication: OEDEMA
  8. TYLENOL ARTHRITIS [Concomitant]
     Indication: ARTHRITIS
  9. LISINOPRIL [Concomitant]
     Indication: HYPERTENSION
  10. VENLAFAXINE [Concomitant]
     Indication: PRODUCT USED FOR UNKNOWN INDICATION
  11. SOTALOL [Concomitant]
     Indication: CARDIAC DISORDER
  12. LANTUS [Concomitant]
     Indication: PRODUCT USED FOR UNKNOWN INDICATION
     Dosage: 32 UNITS AT BEDTIME

REACTIONS (1)
  - Asthenia [Not Recovered/Not Resolved]
